FAERS Safety Report 15664605 (Version 1)
Quarter: 2018Q4

REPORT INFORMATION
  Report Type: Spontaneous
  Country: US (occurrence: US)
  Receive Date: 20181116
  Receipt Date: 20181116
  Transmission Date: 20190205
  Serious: No
  Sender: FDA-Public Use
  Company Number: None

PATIENT
  Age: 41 Year
  Sex: Female

DRUGS (1)
  1. TALTZ [Suspect]
     Active Substance: IXEKIZUMAB
     Indication: PSORIATIC ARTHROPATHY
     Dosage: 80MG/ML INJECT 2 PENS (160MG) SUBCUTANEOUSLY AT SQ
     Route: 058
     Dates: start: 20180828

REACTIONS (5)
  - Heart rate irregular [None]
  - Psoriatic arthropathy [None]
  - Chest pain [None]
  - Cellulitis [None]
  - Rash [None]
